FAERS Safety Report 13678072 (Version 1)
Quarter: 2017Q2

REPORT INFORMATION
  Report Type: Spontaneous
  Country: US (occurrence: US)
  Receive Date: 20170622
  Receipt Date: 20170622
  Transmission Date: 20170830
  Serious: No
  Sender: FDA-Public Use
  Company Number: US-009507513-1706USA007268

PATIENT
  Sex: Male

DRUGS (6)
  1. INTRON A [Suspect]
     Active Substance: INTERFERON ALFA-2B
     Indication: T-CELL LYMPHOMA
     Dosage: 6 MU/1 ML;  M,W, F
     Route: 058
     Dates: start: 20170428
  2. HYDROCODONE [Concomitant]
     Active Substance: HYDROCODONE
     Dosage: UNK
  3. SENNA [Concomitant]
     Active Substance: SENNA LEAF\SENNOSIDES\SENNOSIDES A AND B
     Dosage: UNK
  4. CLOTRIMAZOLE/BETAMETHASONE DIPROPIONATE (WARRICK) [Concomitant]
     Active Substance: BETAMETHASONE DIPROPIONATE\CLOTRIMAZOLE
     Dosage: UNK
  5. VASCEPA [Concomitant]
     Active Substance: ICOSAPENT ETHYL
     Dosage: UNK
  6. MUREL [Concomitant]
     Dosage: UNK

REACTIONS (4)
  - Product use in unapproved indication [Unknown]
  - Decreased appetite [Not Recovered/Not Resolved]
  - Nausea [Not Recovered/Not Resolved]
  - Fatigue [Not Recovered/Not Resolved]
